FAERS Safety Report 5085331-7 (Version None)
Quarter: 2006Q3

REPORT INFORMATION
  Report Type: 
  Country: None (occurrence: None)
  Receive Date: 20060731
  Receipt Date: 20051122
  Transmission Date: 20061208
  Serious: Yes (Other)
  Sender: FDA-Public Use
  Company Number: 200512192BWH

PATIENT
  Age: 32 Year
  Sex: Male

DRUGS (1)
  1. AVELOX [Suspect]
     Indication: UPPER RESPIRATORY TRACT INFECTION
     Dosage: 400 MG, ONCE, ORAL
     Route: 048

REACTIONS (5)
  - ANAPHYLACTIC REACTION [None]
  - DYSPNOEA [None]
  - FLUSHING [None]
  - HYPOTENSION [None]
  - PRURITUS GENERALISED [None]
